FAERS Safety Report 9031484 (Version 1)
Quarter: 2013Q1

REPORT INFORMATION
  Report Type: Spontaneous
  Country: TW (occurrence: TW)
  Receive Date: 20130124
  Receipt Date: 20130124
  Transmission Date: 20140127
  Serious: Yes (Hospitalization, Other)
  Sender: FDA-Public Use
  Company Number: TW-PFIZER INC-TW-WYE-H10840309

PATIENT
  Age: 87 Year
  Sex: Male

DRUGS (2)
  1. TAZOCIN [Suspect]
     Indication: ESCHERICHIA INFECTION
     Dosage: 2.25 G,1X/12 HR
     Route: 042
  2. TAZOCIN [Suspect]
     Indication: ESCHERICHIA URINARY TRACT INFECTION

REACTIONS (2)
  - Neurotoxicity [Recovered/Resolved]
  - Encephalopathy [Recovered/Resolved]
